FAERS Safety Report 8962386 (Version 1)
Quarter: 2013Q1

REPORT INFORMATION
  Report Type: Spontaneous
  Country: US (occurrence: None)
  Receive Date: 20121211
  Receipt Date: 20121211
  Transmission Date: 20140127
  Serious: Yes (Hospitalization)
  Sender: FDA-Public Use
  Company Number: None

PATIENT
  Age: 58 Year
  Sex: Male
  Weight: 57.75 kg

DRUGS (9)
  1. FOLFIRINOX(FLUOROURACIL\IRINOTECAN\LEUCOVORIN\OXALIPLATIN [Suspect]
     Indication: PANCREATIC CARCINOMA
     Dosage: EVERY 2 WEEKS, IV
     Route: 042
     Dates: start: 20121126
  2. PF-04136309 [Suspect]
     Route: 048
     Dates: start: 20121126, end: 20121203
  3. CREON [Concomitant]
  4. OXYCODONE/APAP [Concomitant]
  5. PRILOSEC [Concomitant]
  6. SENNA-5 [Concomitant]
  7. MORPHINE SULFATE ER [Concomitant]
  8. VITAMIN D [Concomitant]
  9. PROCHLORPERAZINE [Concomitant]

REACTIONS (6)
  - Vomiting [None]
  - Nausea [None]
  - Abdominal pain [None]
  - Hypokalaemia [None]
  - Lipase increased [None]
  - Pancreatitis [None]
